FAERS Safety Report 7652633-7 (Version None)
Quarter: 2011Q3

REPORT INFORMATION
  Report Type: 
  Country: None (occurrence: None)
  Receive Date: 20110803
  Receipt Date: 20110722
  Transmission Date: 20111222
  Serious: Yes (Hospitalization)
  Sender: FDA-Public Use
  Company Number: SE-SANOFI-AVENTIS-2011SA029012

PATIENT

DRUGS (11)
  1. PLACEBO [Suspect]
     Indication: ATRIAL FIBRILLATION
     Route: 048
     Dates: start: 20110418
  2. FUROSEMIDE [Concomitant]
  3. WARFARIN SODIUM [Suspect]
     Dosage: 23.7 MG WEEKLY
  4. SIMVASTATIN [Concomitant]
  5. MINDIAB [Concomitant]
  6. FELODIPINE [Concomitant]
  7. OMEPRAZOLE [Concomitant]
  8. METFORMIN HCL [Concomitant]
  9. PULMICORT [Suspect]
  10. LOSARTAN POTASSIUM [Concomitant]
  11. ATENOLOL [Concomitant]

REACTIONS (3)
  - DYSPNOEA [None]
  - CHRONIC OBSTRUCTIVE PULMONARY DISEASE [None]
  - PNEUMONIA [None]
